FAERS Safety Report 12501968 (Version 1)
Quarter: 2016Q2

REPORT INFORMATION
  Report Type: Report from Study
  Country: US (occurrence: US)
  Receive Date: 20160627
  Receipt Date: 20160627
  Transmission Date: 20160815
  Serious: Yes (Hospitalization)
  Sender: FDA-Public Use
  Company Number: US-ABBVIE-16K-163-1660536-00

PATIENT
  Age: 30 Year
  Sex: Male

DRUGS (3)
  1. LEVOTHYROXINE. [Concomitant]
     Active Substance: LEVOTHYROXINE
     Indication: PRODUCT USED FOR UNKNOWN INDICATION
  2. HUMIRA [Suspect]
     Active Substance: ADALIMUMAB
     Indication: PSORIATIC ARTHROPATHY
     Route: 058
     Dates: start: 201505, end: 20160611
  3. FINASTERIDE. [Concomitant]
     Active Substance: FINASTERIDE
     Indication: PRODUCT USED FOR UNKNOWN INDICATION

REACTIONS (9)
  - Pain in extremity [Recovering/Resolving]
  - Nausea [Recovered/Resolved]
  - Haematochezia [Recovered/Resolved]
  - Thrombosis [Unknown]
  - Diarrhoea [Recovered/Resolved]
  - Colitis [Recovered/Resolved]
  - Vomiting [Recovered/Resolved]
  - Peripheral swelling [Recovering/Resolving]
  - Gastrointestinal viral infection [Recovered/Resolved]

NARRATIVE: CASE EVENT DATE: 201606
